FAERS Safety Report 5506414-0 (Version None)
Quarter: 2007Q4

REPORT INFORMATION
  Report Type: 
  Country: None (occurrence: None)
  Receive Date: 20071101
  Receipt Date: 20071019
  Transmission Date: 20080405
  Serious: Yes (Hospitalization)
  Sender: FDA-Public Use
  Company Number: 2007SP021209

PATIENT
  Age: 15 Year
  Sex: Female

DRUGS (1)
  1. BETAMETHASONE DIPROPIONATE [Suspect]
     Indication: ACNE
     Dosage: ;TOP
     Route: 061
     Dates: start: 20070401, end: 20070807

REACTIONS (4)
  - ACNE [None]
  - CELLULITIS [None]
  - CONDITION AGGRAVATED [None]
  - WHITE BLOOD CELL COUNT INCREASED [None]
